FAERS Safety Report 23590241 (Version 1)
Quarter: 2024Q1

REPORT INFORMATION
  Report Type: Spontaneous
  Country: IT (occurrence: IT)
  Receive Date: 20240304
  Receipt Date: 20240304
  Transmission Date: 20240410
  Serious: Yes (Other)
  Sender: FDA-Public Use
  Company Number: None

PATIENT
  Age: 19 Year
  Sex: Female
  Weight: 50 kg

DRUGS (4)
  1. SEASONIQUE [Suspect]
     Active Substance: ETHINYL ESTRADIOL\LEVONORGESTREL
     Indication: Adenomyosis
     Route: 048
     Dates: start: 20231009, end: 20231115
  2. DIENOGEST [Suspect]
     Active Substance: DIENOGEST
     Indication: Adenomyosis
     Route: 048
     Dates: start: 20230711, end: 20230917
  3. ETHINYL ESTRADIOL\GESTODENE [Suspect]
     Active Substance: ETHINYL ESTRADIOL\GESTODENE
     Indication: Dysmenorrhoea
     Route: 048
     Dates: start: 20010501, end: 20110201
  4. ESTRADIOL\NOMEGESTROL ACETATE [Suspect]
     Active Substance: ESTRADIOL\NOMEGESTROL ACETATE
     Indication: Adenomyosis
     Route: 048
     Dates: start: 20230918, end: 20231008

REACTIONS (3)
  - Depression [Recovered/Resolved]
  - Asthenia [Recovered/Resolved]
  - Panic attack [Recovered/Resolved]

NARRATIVE: CASE EVENT DATE: 20010201
